FAERS Safety Report 5099716-6 (Version None)
Quarter: 2006Q3

REPORT INFORMATION
  Report Type: 
  Country: None (occurrence: None)
  Receive Date: 20060908
  Receipt Date: 20060906
  Transmission Date: 20061208
  Serious: Yes (Hospitalization, Congenital Anomaly)
  Sender: FDA-Public Use
  Company Number: US-GLAXOSMITHKLINE-A0619429A

PATIENT
  Sex: Male
  Weight: 3.1 kg

DRUGS (2)
  1. LAMICTAL [Suspect]
     Indication: EPILEPSY
     Dosage: 150MG PER DAY
  2. DEPAKOTE [Concomitant]
     Indication: EPILEPSY
     Dosage: 1500MG PER DAY

REACTIONS (4)
  - DACRYOSTENOSIS ACQUIRED [None]
  - DRUG EXPOSURE DURING PREGNANCY [None]
  - HYPOSPADIAS [None]
  - LUNG INJURY [None]
